FAERS Safety Report 26144461 (Version 1)
Quarter: 2025Q4

REPORT INFORMATION
  Report Type: Spontaneous
  Country: US (occurrence: US)
  Receive Date: 20251211
  Receipt Date: 20251211
  Transmission Date: 20260117
  Serious: Yes (Other)
  Sender: RANBAXY
  Company Number: US-SUN PHARMACEUTICAL INDUSTRIES INC-2025R1-541388

PATIENT
  Sex: Female

DRUGS (2)
  1. ODOMZO [Suspect]
     Active Substance: SONIDEGIB
     Indication: Lip neoplasm
     Dosage: 200 MILLIGRAM, OD, ON AN EMPTY STOMACH, 1 HOUR BEFORE OR 2 HOURS AFTER A MEAL
     Route: 048
  2. ODOMZO [Suspect]
     Active Substance: SONIDEGIB
     Indication: Basal cell carcinoma

REACTIONS (1)
  - Neoplasm recurrence [Unknown]
